FAERS Safety Report 13078298 (Version 1)
Quarter: 2017Q1

REPORT INFORMATION
  Report Type: Spontaneous
  Country: US (occurrence: US)
  Receive Date: 20170102
  Receipt Date: 20170102
  Transmission Date: 20170428
  Serious: Yes (Other)
  Sender: FDA-Public Use
  Company Number: US-AUROBINDO-AUR-APL-2016-15964

PATIENT
  Age: 72 Year
  Sex: Male

DRUGS (1)
  1. PREDNISONE 10 MG [Suspect]
     Active Substance: PREDNISONE
     Indication: IMMUNOSUPPRESSANT DRUG THERAPY
     Dosage: 10 MG, DAILY
     Route: 065

REACTIONS (7)
  - Haemolytic anaemia [Unknown]
  - Pyrexia [Unknown]
  - Tachypnoea [Unknown]
  - Tachycardia [Unknown]
  - Cough [Unknown]
  - Pulmonary alveolar haemorrhage [Unknown]
  - Mental status changes [Unknown]
